FAERS Safety Report 12950428 (Version 1)
Quarter: 2016Q4

REPORT INFORMATION
  Report Type: Spontaneous
  Country: US (occurrence: US)
  Receive Date: 20161117
  Receipt Date: 20161117
  Transmission Date: 20170207
  Serious: Yes (Other)
  Sender: FDA-Public Use
  Company Number: None

PATIENT
  Age: 58 Year
  Sex: Male
  Weight: 83.25 kg

DRUGS (4)
  1. OXYMORPHONE HCL [Suspect]
     Active Substance: OXYMORPHONE HYDROCHLORIDE
     Indication: FACET JOINT SYNDROME
     Dosage: QUANTITY:12 TABLET(S); EVERY 8 HOURS; ORAL?
     Route: 048
  2. OXYMORPHONE HCL [Suspect]
     Active Substance: OXYMORPHONE HYDROCHLORIDE
     Indication: SPINAL DISORDER
     Dosage: QUANTITY:12 TABLET(S); EVERY 8 HOURS; ORAL?
     Route: 048
  3. OXYMORPHONE HCL [Suspect]
     Active Substance: OXYMORPHONE HYDROCHLORIDE
     Indication: LIGAMENT DISORDER
     Dosage: QUANTITY:12 TABLET(S); EVERY 8 HOURS; ORAL?
     Route: 048
  4. OXYMORPHONE HCL [Suspect]
     Active Substance: OXYMORPHONE HYDROCHLORIDE
     Indication: SCIATICA
     Dosage: QUANTITY:12 TABLET(S); EVERY 8 HOURS; ORAL?
     Route: 048

REACTIONS (3)
  - Headache [None]
  - Drug ineffective [None]
  - Product quality issue [None]
